FAERS Safety Report 15534536 (Version 1)
Quarter: 2018Q4

REPORT INFORMATION
  Report Type: Spontaneous
  Country: FR (occurrence: FR)
  Receive Date: 20181022
  Receipt Date: 20181022
  Transmission Date: 20190205
  Serious: Yes (Other)
  Sender: FDA-Public Use
  Company Number: FR-SUN PHARMACEUTICAL INDUSTRIES LTD-2018RR-188019

PATIENT
  Age: 13 Year
  Sex: Female

DRUGS (4)
  1. METHOTREXATE. [Suspect]
     Active Substance: METHOTREXATE
     Indication: DERMATOMYOSITIS
     Dosage: 15 MG, QD
     Route: 048
  2. OMEPRAZOLE. [Suspect]
     Active Substance: OMEPRAZOLE
     Indication: ADRENOCORTICAL STEROID THERAPY
     Dosage: 10 MG, QD
     Route: 048
  3. CALCIDOSE VITAMINE D, POUDRE ORALE EN SACHET-DOSE [Suspect]
     Active Substance: CALCIUM\CHOLECALCIFEROL
     Indication: ADRENOCORTICAL STEROID THERAPY
     Dosage: 1 DF, QD
     Route: 048
  4. SOLUPRED (METHYLPREDNISOLONE) [Suspect]
     Active Substance: METHYLPREDNISOLONE
     Indication: DERMATOMYOSITIS
     Dosage: 15 MG, QD
     Route: 048

REACTIONS (1)
  - Hepatocellular injury [Not Recovered/Not Resolved]

NARRATIVE: CASE EVENT DATE: 20171002
